FAERS Safety Report 7230838-7 (Version None)
Quarter: 2011Q1

REPORT INFORMATION
  Report Type: 
  Country: None (occurrence: None)
  Receive Date: 20110118
  Receipt Date: 20110104
  Transmission Date: 20110831
  Serious: Yes (Hospitalization)
  Sender: FDA-Public Use
  Company Number: IE-MEDIMMUNE-MEDI-0012213

PATIENT
  Sex: Female
  Weight: 5.76 kg

DRUGS (6)
  1. FERROUS SULFATE [Concomitant]
  2. LANSOPRAZOLE [Concomitant]
  3. KAPSOVIT [Concomitant]
  4. FUROSEMIDE [Concomitant]
  5. SPIRONOLACTONE [Concomitant]
  6. SYNAGIS [Suspect]
     Indication: HEART DISEASE CONGENITAL
     Route: 030
     Dates: start: 20100921, end: 20100921

REACTIONS (2)
  - INFLUENZA VIRUS TEST [None]
  - RESPIRATORY SYNCYTIAL VIRUS TEST [None]
